FAERS Safety Report 10086509 (Version 2)
Quarter: 2014Q2

REPORT INFORMATION
  Report Type: Report from Study
  Country: CA (occurrence: CA)
  Receive Date: 20140418
  Receipt Date: 20140418
  Transmission Date: 20141212
  Serious: Yes (Other)
  Sender: FDA-Public Use
  Company Number: CA-JNJFOC-20140310410

PATIENT
  Sex: Female
  Weight: 72 kg

DRUGS (2)
  1. REMICADE [Suspect]
     Indication: ANKYLOSING SPONDYLITIS
     Route: 042
     Dates: start: 20131003, end: 20140411
  2. HUMIRA [Concomitant]
     Route: 065

REACTIONS (2)
  - Systemic lupus erythematosus [Unknown]
  - Drug effect decreased [Unknown]
